FAERS Safety Report 5963894-4 (Version None)
Quarter: 2008Q4

REPORT INFORMATION
  Report Type: 
  Country: None (occurrence: None)
  Receive Date: 20081121
  Receipt Date: 20081121
  Transmission Date: 20090506
  Serious: Yes (Disabling)
  Sender: FDA-Public Use
  Company Number: None

PATIENT
  Age: 67 Year
  Sex: Female
  Weight: 140 kg

DRUGS (2)
  1. CARTIA XT [Suspect]
  2. CELEXA [Suspect]

REACTIONS (5)
  - DIARRHOEA [None]
  - DRUG EFFECT DECREASED [None]
  - DYSTONIA [None]
  - NERVOUSNESS [None]
  - RESTLESS LEGS SYNDROME [None]
